FAERS Safety Report 7201299-9 (Version None)
Quarter: 2010Q4

REPORT INFORMATION
  Report Type: 
  Country: None (occurrence: None)
  Receive Date: 20101227
  Receipt Date: 20101227
  Transmission Date: 20110411
  Serious: Yes (Other)
  Sender: FDA-Public Use
  Company Number: None

PATIENT
  Age: 36 Year
  Sex: Female
  Weight: 74.8435 kg

DRUGS (1)
  1. RELPAX [Suspect]
     Indication: MIGRAINE
     Dosage: 40 MG TWICE IN 8 HOURS PO
     Route: 048
     Dates: start: 20101225, end: 20101225

REACTIONS (2)
  - SEROTONIN SYNDROME [None]
  - SUICIDAL IDEATION [None]
